FAERS Safety Report 10548484 (Version 1)
Quarter: 2014Q4

REPORT INFORMATION
  Report Type: Spontaneous
  Country: US (occurrence: US)
  Receive Date: 20141028
  Receipt Date: 20141028
  Transmission Date: 20150529
  Serious: Yes (Hospitalization)
  Sender: FDA-Public Use
  Company Number: US-JNJFOC-20141012124

PATIENT
  Age: 45 Year
  Sex: Female
  Weight: 79.38 kg

DRUGS (3)
  1. DURAGESIC [Suspect]
     Active Substance: FENTANYL
     Indication: INTERVERTEBRAL DISC DISORDER
     Route: 062
     Dates: start: 201311
  2. DURAGESIC [Suspect]
     Active Substance: FENTANYL
     Indication: INTERVERTEBRAL DISC PROTRUSION
     Route: 062
     Dates: start: 201311
  3. XANAX [Concomitant]
     Active Substance: ALPRAZOLAM
     Indication: ANXIETY
     Route: 048

REACTIONS (8)
  - Product tampering [Unknown]
  - Product quality issue [Unknown]
  - Application site reaction [Not Recovered/Not Resolved]
  - Pulmonary thrombosis [Unknown]
  - Wrong technique in drug usage process [Unknown]
  - Product quality issue [Unknown]
  - Application site pain [Unknown]
  - Acne [Unknown]

NARRATIVE: CASE EVENT DATE: 2014
